FAERS Safety Report 9290141 (Version 1)
Quarter: 2013Q2

REPORT INFORMATION
  Report Type: Spontaneous
  Country: US (occurrence: US)
  Receive Date: 20130515
  Receipt Date: 20130515
  Transmission Date: 20140414
  Serious: Yes (Hospitalization, Other)
  Sender: FDA-Public Use
  Company Number: US-ELI_LILLY_AND_COMPANY-US201304003109

PATIENT
  Age: 69 Year
  Sex: Female

DRUGS (17)
  1. ZYPREXA [Suspect]
     Dosage: 15 MG, EACH EVENING
     Dates: start: 2009
  2. GABAPENTIN [Concomitant]
     Dosage: 300 MG, TID
     Route: 048
  3. BACLOFEN [Concomitant]
     Dosage: 10 MG, TID
     Route: 048
  4. LORAZEPAM [Concomitant]
     Dosage: 0.5 MG, TID
     Route: 048
  5. RANITIDINE [Concomitant]
     Dosage: 150 MG, BID
     Route: 048
  6. LAMOTRIGINE [Concomitant]
     Dosage: 200 MG, QD
     Route: 048
  7. METHYLPHENIDATE [Concomitant]
     Dosage: 10 MG, BID
     Route: 048
  8. FUROSEMIDE [Concomitant]
     Dosage: 20 MG, BID
     Route: 048
  9. ENABLEX                            /01760401/ [Concomitant]
     Dosage: 7.5 MG, QD
     Route: 048
  10. NORTRIPTYLIN [Concomitant]
     Dosage: 25 MG, EACH EVENING
     Route: 048
  11. TRAZODONE [Concomitant]
     Dosage: 50 MG, EACH EVENING
     Route: 048
  12. CYMBALTA [Concomitant]
     Dosage: 30 MG, EACH EVENING
     Route: 048
  13. CYMBALTA [Concomitant]
     Dosage: 60 MG, EACH EVENING
     Route: 048
  14. VICODIN [Concomitant]
     Dosage: 1 DF, PRN
     Route: 048
  15. METHADONE [Concomitant]
     Dosage: 5 MG, PRN
  16. ADVAIR [Concomitant]
     Dosage: 1 DF, PRN
     Route: 055
  17. ALBUTEROL [Concomitant]
     Indication: WHEEZING
     Dosage: 1 DF, PRN
     Route: 055

REACTIONS (18)
  - Renal failure [Unknown]
  - Pneumothorax [Unknown]
  - Gastrointestinal necrosis [Unknown]
  - Influenza [Unknown]
  - Sleep apnoea syndrome [Unknown]
  - Torticollis [Unknown]
  - Multiple sclerosis [Unknown]
  - Fibromyalgia [Unknown]
  - Myelodysplastic syndrome [Unknown]
  - Epilepsy [Unknown]
  - Gastrooesophageal reflux disease [Unknown]
  - Polymyositis [Unknown]
  - Systemic lupus erythematosus [Unknown]
  - Arthritis [Unknown]
  - Scoliosis [Unknown]
  - Complex regional pain syndrome [Unknown]
  - Bipolar disorder [Unknown]
  - Asthma [Unknown]
